FAERS Safety Report 9516618 (Version 1)
Quarter: 2013Q3

REPORT INFORMATION
  Report Type: Spontaneous
  Country: US (occurrence: US)
  Receive Date: 20130911
  Receipt Date: 20130911
  Transmission Date: 20140515
  Serious: Yes (Hospitalization)
  Sender: FDA-Public Use
  Company Number: US-GLAXOSMITHKLINE-A1041072A

PATIENT
  Age: 3 Year
  Sex: Male

DRUGS (1)
  1. BUPROPION [Suspect]
     Indication: DEPRESSION
     Route: 048
     Dates: start: 20130203

REACTIONS (1)
  - Accidental exposure to product [Unknown]
